FAERS Safety Report 24285877 (Version 1)
Quarter: 2024Q3

REPORT INFORMATION
  Report Type: Spontaneous
  Country: CN (occurrence: CN)
  Receive Date: 20240905
  Receipt Date: 20240905
  Transmission Date: 20241017
  Serious: Yes (Hospitalization, Other)
  Sender: BAYER
  Company Number: CN-BAYER-2024A126533

PATIENT
  Age: 57 Year
  Sex: Male

DRUGS (4)
  1. STIVARGA [Suspect]
     Active Substance: REGORAFENIB MONOHYDRATE
     Indication: Chemotherapy
     Dosage: 4 DF, QD
     Route: 048
     Dates: start: 20240723
  2. STIVARGA [Suspect]
     Active Substance: REGORAFENIB MONOHYDRATE
     Indication: Hepatic cancer
  3. TISLELIZUMAB [Suspect]
     Active Substance: TISLELIZUMAB
     Indication: Chemotherapy
     Dosage: 20 ML, QD
     Route: 041
     Dates: start: 20240723
  4. TISLELIZUMAB [Suspect]
     Active Substance: TISLELIZUMAB
     Indication: Hepatic cancer

REACTIONS (13)
  - Decreased appetite [None]
  - Abdominal pain upper [None]
  - Rhabdomyolysis [Recovering/Resolving]
  - Myalgia [Recovering/Resolving]
  - Myositis [Recovering/Resolving]
  - Cough [None]
  - Asthenia [None]
  - Vomiting [None]
  - Blood sodium decreased [None]
  - Blood chloride decreased [None]
  - Blood calcium decreased [None]
  - Blood potassium decreased [None]
  - Carbon dioxide combining power decreased [None]

NARRATIVE: CASE EVENT DATE: 20240701
